FAERS Safety Report 7212210-9 (Version None)
Quarter: 2010Q4

REPORT INFORMATION
  Report Type: 
  Country: None (occurrence: None)
  Receive Date: 20101227
  Receipt Date: 20101212
  Transmission Date: 20110411
  Serious: Yes (Hospitalization, Other)
  Sender: FDA-Public Use
  Company Number: 1000017833

PATIENT
  Age: 68 Year
  Sex: Female

DRUGS (4)
  1. ESCITALOPRAM OXALATE [Suspect]
     Dosage: ORAL
     Route: 048
     Dates: start: 20101212, end: 20101212
  2. TAVOR (LORAZEPAM) (1 MILLIGRAM, TABLETS) [Suspect]
     Dosage: 50 MG, ONCE, ORAL
     Route: 048
     Dates: start: 20101212, end: 20101212
  3. DIAZEPAM (DIAZEPAM) (5 MILLIGRAM, TABLETS) [Suspect]
     Dosage: 250 MG, ONCE, ORAL
     Route: 048
     Dates: start: 20101212, end: 20101212
  4. SEROQUEL [Suspect]
     Dosage: ORAL
     Route: 048
     Dates: start: 20101212, end: 20101212

REACTIONS (4)
  - GASTROINTESTINAL SOUNDS ABNORMAL [None]
  - MULTIPLE DRUG OVERDOSE INTENTIONAL [None]
  - SOPOR [None]
  - SUICIDE ATTEMPT [None]
